FAERS Safety Report 5636604-8 (Version None)
Quarter: 2008Q1

REPORT INFORMATION
  Report Type: 
  Country: None (occurrence: None)
  Receive Date: 20080219
  Receipt Date: 20080219
  Transmission Date: 20080703
  Serious: Yes (Hospitalization, Disabling)
  Sender: FDA-Public Use
  Company Number: None

PATIENT
  Age: 50 Year
  Sex: Female
  Weight: 76.2043 kg

DRUGS (16)
  1. GEMCITABINE [Suspect]
     Indication: NON-SMALL CELL LUNG CANCER
     Dosage: 800 MG/M2 EVERY TWO WEEKS IV
     Route: 042
     Dates: start: 20060208
  2. GEMCITABINE [Suspect]
     Indication: NON-SMALL CELL LUNG CANCER
     Dosage: 800 MG/M2 EVERY TWO WEEKS IV
     Route: 042
     Dates: start: 20060301
  3. GEMCITABINE [Suspect]
     Indication: NON-SMALL CELL LUNG CANCER
     Dosage: 800 MG/M2 EVERY TWO WEEKS IV
     Route: 042
     Dates: start: 20060329
  4. GEMCITABINE [Suspect]
     Indication: NON-SMALL CELL LUNG CANCER
     Dosage: 800 MG/M2 EVERY TWO WEEKS IV
     Route: 042
     Dates: start: 20060419
  5. GEMCITABINE [Suspect]
     Indication: NON-SMALL CELL LUNG CANCER
     Dosage: 800 MG/M2 EVERY TWO WEEKS IV
     Route: 042
     Dates: start: 20060503
  6. OXALIPLATIN [Suspect]
     Indication: NON-SMALL CELL LUNG CANCER
     Dosage: 80 MG/M2 EVERY TWO WEEKS IV
     Route: 042
     Dates: start: 20060208
  7. OXALIPLATIN [Suspect]
     Indication: NON-SMALL CELL LUNG CANCER
     Dosage: 80 MG/M2 EVERY TWO WEEKS IV
     Route: 042
     Dates: start: 20060301
  8. OXALIPLATIN [Suspect]
     Indication: NON-SMALL CELL LUNG CANCER
     Dosage: 80 MG/M2 EVERY TWO WEEKS IV
     Route: 042
     Dates: start: 20060329
  9. OXALIPLATIN [Suspect]
     Indication: NON-SMALL CELL LUNG CANCER
     Dosage: 80 MG/M2 EVERY TWO WEEKS IV
     Route: 042
     Dates: start: 20060419
  10. OXALIPLATIN [Suspect]
     Indication: NON-SMALL CELL LUNG CANCER
     Dosage: 80 MG/M2 EVERY TWO WEEKS IV
     Route: 042
     Dates: start: 20060503
  11. LASIK [Concomitant]
  12. ZANTAC [Concomitant]
  13. PREDNISONE TAB [Concomitant]
  14. NORVASC [Concomitant]
  15. ATACAN [Concomitant]
  16. MULTI-VITAMIN [Concomitant]

REACTIONS (4)
  - ATRIOVENTRICULAR BLOCK COMPLETE [None]
  - CARDIAC ARREST [None]
  - CARDIAC FAILURE CONGESTIVE [None]
  - RADIATION PNEUMONITIS [None]
